FAERS Safety Report 22299095 (Version 1)
Quarter: 2023Q2

REPORT INFORMATION
  Report Type: Spontaneous
  Country: PT (occurrence: PT)
  Receive Date: 20230509
  Receipt Date: 20230509
  Transmission Date: 20230721
  Serious: Yes (Other)
  Sender: FDA-Public Use
  Company Number: PT-ROCHE-3252397

PATIENT
  Age: 77 Year
  Sex: Female

DRUGS (41)
  1. CAPECITABINE [Suspect]
     Active Substance: CAPECITABINE
     Indication: HER2 positive breast cancer
     Dosage: MOST RECENT DOSE PRIOR TO THE EVENT: 16/JUN/2020, 0.5 PER DAY
     Route: 048
     Dates: start: 20200211, end: 20200303
  2. CAPECITABINE [Suspect]
     Active Substance: CAPECITABINE
     Indication: HER2 positive breast cancer
     Dosage: FREQUENCY:0.5 DAY
     Route: 048
     Dates: start: 20200331, end: 20200602
  3. CAPECITABINE [Suspect]
     Active Substance: CAPECITABINE
     Indication: HER2 positive breast cancer
     Dosage: MOST RECENT DOSE PRIOR TO  31/AUG/2021, 0.5 DAY
     Route: 048
     Dates: start: 20200616
  4. PERTUZUMAB [Suspect]
     Active Substance: PERTUZUMAB
     Indication: HER2 positive breast cancer
     Dosage: EVERY THREE WEEK
     Route: 042
     Dates: start: 20170227, end: 20170927
  5. PERTUZUMAB [Suspect]
     Active Substance: PERTUZUMAB
     Indication: HER2 positive breast cancer
     Dosage: MOST RECENT DOSE PRIOR TO AE 13/AUG/2018, EVERY THREE WEEK
     Route: 042
     Dates: start: 20171108
  6. DOCETAXEL [Suspect]
     Active Substance: DOCETAXEL
     Indication: HER2 positive breast cancer
     Dosage: EVERY THREE WEEK
     Route: 042
     Dates: start: 20170227
  7. TRASTUZUMAB [Suspect]
     Active Substance: TRASTUZUMAB
     Indication: HER2 positive breast cancer
     Dosage: EVERY THREE WEEK
     Route: 042
     Dates: start: 20170227, end: 20170927
  8. TRASTUZUMAB [Suspect]
     Active Substance: TRASTUZUMAB
     Indication: HER2 positive breast cancer
     Dosage: MOST RECENT DOSE PRIOR TO AE 03/SEP/2018,EVERY THREE WEEK
     Route: 042
     Dates: start: 20171108
  9. FAM-TRASTUZUMAB DERUXTECAN-NXKI [Suspect]
     Active Substance: FAM-TRASTUZUMAB DERUXTECAN-NXKI
     Indication: HER2 positive breast cancer
     Dosage: EVERY 3 WEEK
     Route: 042
     Dates: start: 20211013
  10. TAMOXIFEN [Suspect]
     Active Substance: TAMOXIFEN
     Indication: HER2 positive breast cancer
     Dosage: DAILY DOSE: 20 MILLIGRAM
     Route: 048
     Dates: start: 20170629
  11. ZOLEDRONIC ACID [Suspect]
     Active Substance: ZOLEDRONIC ACID
     Indication: HER2 positive breast cancer
     Dosage: MOST RECENT DOSE PRIOR TO THE EVENT: 2/MAR/2022,EVERY 4 WEEK
     Route: 042
     Dates: start: 20170227
  12. LAPATINIB [Suspect]
     Active Substance: LAPATINIB
     Indication: HER2 positive breast cancer
     Route: 048
     Dates: start: 20200211, end: 20200303
  13. LAPATINIB [Suspect]
     Active Substance: LAPATINIB
     Indication: HER2 positive breast cancer
     Dosage: MOST RECENT DOSE PRIOR TO AE 31/MAR/2020?DAILY DOSE: 1000 MILLIGRAM
     Route: 048
     Dates: start: 20200331
  14. ANASTROZOLE [Suspect]
     Active Substance: ANASTROZOLE
     Indication: HER2 positive breast cancer
     Dosage: MOST RECENT DOSE PRIOR TO AE /OCT/2016 DAILY
     Route: 048
     Dates: start: 201606
  15. ADO-TRASTUZUMAB EMTANSINE [Suspect]
     Active Substance: ADO-TRASTUZUMAB EMTANSINE
     Route: 042
     Dates: start: 20180917
  16. Nolotil [Concomitant]
  17. METFORMIN [Concomitant]
     Active Substance: METFORMIN HYDROCHLORIDE
     Dosage: EVERY 0.5 DAY
     Dates: start: 2016
  18. LOPERAMIDE [Concomitant]
     Active Substance: LOPERAMIDE
     Indication: Diarrhoea
  19. OFLOXACIN [Concomitant]
     Active Substance: OFLOXACIN
     Dates: start: 20170529
  20. FOSFOMYCIN [Concomitant]
     Active Substance: FOSFOMYCIN
     Indication: Urinary tract infection
     Dates: start: 20180418
  21. CALCIUM\VITAMIN D [Concomitant]
     Active Substance: CALCIUM\VITAMIN D
  22. AMOXICILLIN [Concomitant]
     Active Substance: AMOXICILLIN
     Dates: start: 202101
  23. BILASTINE [Concomitant]
     Active Substance: BILASTINE
     Dates: start: 20180418
  24. OMEPRAZOLE [Concomitant]
     Active Substance: OMEPRAZOLE
     Dosage: DAILY DOSE: 20 MILLIGRAM
     Dates: start: 2016
  25. Fluxetine [Concomitant]
     Indication: Depression
     Dates: start: 20170926
  26. VALACYCLOVIR HYDROCHLORIDE [Concomitant]
     Active Substance: VALACYCLOVIR HYDROCHLORIDE
     Dates: start: 20180328, end: 20180418
  27. METOCLOPRAMIDE [Concomitant]
     Active Substance: METOCLOPRAMIDE
  28. ZALDIAR [Concomitant]
     Active Substance: ACETAMINOPHEN\TRAMADOL HYDROCHLORIDE
     Dates: start: 20190326
  29. XARELTO [Concomitant]
     Active Substance: RIVAROXABAN
     Dosage: DAILY DOSE: 20 MILLIGRAM
     Dates: start: 20161228
  30. ARCOXIA [Concomitant]
     Active Substance: ETORICOXIB
  31. BISOPROLOL [Concomitant]
     Active Substance: BISOPROLOL
     Dosage: DAILY DOSE: 2.5 MILLIGRAM
     Dates: start: 2016
  32. MAGNESIUM [Concomitant]
     Active Substance: MAGNESIUM
     Indication: Hypomagnesaemia
     Dates: start: 20180220
  33. POTASSIUM [Concomitant]
     Active Substance: POTASSIUM
     Indication: Hypokalaemia
  34. Codipront [Concomitant]
     Indication: Cough
  35. BACTRIM [Concomitant]
     Active Substance: SULFAMETHOXAZOLE\TRIMETHOPRIM
     Indication: Urinary tract infection
     Dates: start: 201802, end: 201803
  36. Fucidine [Concomitant]
     Dates: start: 20200110
  37. ACETAMINOPHEN [Concomitant]
     Active Substance: ACETAMINOPHEN
     Indication: Pain
  38. ETHYL LOFLAZEPATE [Concomitant]
     Active Substance: ETHYL LOFLAZEPATE
     Dates: start: 2016
  39. ESOMEPRAZOLE [Concomitant]
     Active Substance: ESOMEPRAZOLE
     Dosage: DAILY
     Dates: start: 20200324
  40. POLYETHYLENE GLYCOLS [Concomitant]
     Active Substance: POLYETHYLENE GLYCOLS
     Indication: Constipation
     Dosage: DAILY
     Dates: start: 20211116
  41. TRAMADOL [Concomitant]
     Active Substance: TRAMADOL
     Indication: Pain

REACTIONS (1)
  - Pneumonitis [Recovered/Resolved]

NARRATIVE: CASE EVENT DATE: 20220510
